FAERS Safety Report 6000368-9 (Version None)
Quarter: 2008Q4

REPORT INFORMATION
  Report Type: 
  Country: None (occurrence: None)
  Receive Date: 20081211
  Receipt Date: 20081211
  Transmission Date: 20090506
  Serious: Yes (Hospitalization)
  Sender: FDA-Public Use
  Company Number: None

PATIENT
  Age: 69 Year
  Sex: Male
  Weight: 72.57 kg

DRUGS (1)
  1. DEXMEDETOMIDINE  100 MICROGRAMS/MLHOSPIRA [Suspect]
     Indication: SEDATION
     Dosage: 70 MICROGRAMS ONCE IV BOLUS; 0.4 TO 0.7 MICROGRAMS/KG/HR CONTINUOUSLY IV DRIP
     Route: 040
     Dates: start: 20081113, end: 20081113

REACTIONS (4)
  - AGGRESSION [None]
  - AGITATION [None]
  - HALLUCINATION, VISUAL [None]
  - PHYSICAL ABUSE [None]
